FAERS Safety Report 15927989 (Version 4)
Quarter: 2019Q1

REPORT INFORMATION
  Report Type: Report from Study
  Country: US (occurrence: US)
  Receive Date: 20190206
  Receipt Date: 20190222
  Transmission Date: 20190417
  Serious: Yes (Death, Hospitalization, Other)
  Sender: FDA-Public Use
  Company Number: US-BAYER-2019-016776

PATIENT
  Age: 76 Year
  Sex: Female

DRUGS (7)
  1. COPANLISIB. [Suspect]
     Active Substance: COPANLISIB
     Indication: CENTRAL NERVOUS SYSTEM LYMPHOMA
     Dosage: UNK
     Dates: start: 20181228
  2. COPANLISIB. [Suspect]
     Active Substance: COPANLISIB
     Indication: CENTRAL NERVOUS SYSTEM LYMPHOMA
     Dosage: UNK
     Dates: start: 20181207, end: 20190111
  3. COPANLISIB. [Suspect]
     Active Substance: COPANLISIB
     Indication: CENTRAL NERVOUS SYSTEM LYMPHOMA
     Dosage: UNK
     Dates: start: 20181214
  4. COPANLISIB. [Suspect]
     Active Substance: COPANLISIB
     Indication: CENTRAL NERVOUS SYSTEM LYMPHOMA
     Dosage: UNK
     Dates: start: 20190111
  5. COPANLISIB. [Suspect]
     Active Substance: COPANLISIB
     Indication: CENTRAL NERVOUS SYSTEM LYMPHOMA
     Dosage: UNK
     Dates: start: 20181129
  6. COPANLISIB. [Suspect]
     Active Substance: COPANLISIB
     Indication: CENTRAL NERVOUS SYSTEM LYMPHOMA
     Dosage: UNK
     Dates: start: 20190104
  7. IBRUTINIB [Suspect]
     Active Substance: IBRUTINIB
     Indication: CENTRAL NERVOUS SYSTEM LYMPHOMA
     Dosage: UNK, QD
     Dates: start: 20181129, end: 20190118

REACTIONS (16)
  - Multiple organ dysfunction syndrome [Fatal]
  - Shock [None]
  - Hyperkalaemia [None]
  - Cough [None]
  - Hyperglycaemia [None]
  - Respiratory failure [None]
  - Hypoxia [None]
  - Renal failure [None]
  - Fall [None]
  - Constipation [None]
  - Pneumocystis jirovecii pneumonia [Fatal]
  - Nausea [None]
  - Asthenia [None]
  - Leukocytosis [None]
  - Vomiting [None]
  - Acidosis [None]

NARRATIVE: CASE EVENT DATE: 20190119
